FAERS Safety Report 19573692 (Version 1)
Quarter: 2021Q3

REPORT INFORMATION
  Report Type: Report from Study
  Country: DE (occurrence: DE)
  Receive Date: 20210717
  Receipt Date: 20210717
  Transmission Date: 20211014
  Serious: Yes (Hospitalization)
  Sender: FDA-Public Use
  Company Number: DE-TAKEDA-DE202001237

PATIENT
  Sex: Female
  Weight: 59 kg

DRUGS (20)
  1. TEDUGLUTIDE [Suspect]
     Active Substance: TEDUGLUTIDE
     Dosage: 3.0 MILLIGRAM (0.05 MILLIGRAM/KILOGRAM DAILY DOSE), 7 DOSES PER WEEK
     Route: 058
     Dates: start: 201704, end: 201706
  2. SINUPRET [GENTIANA LUTEA ROOT;PRIMULA SPP. FLOWER;RUMEX SPP. HERB;SAMB [Concomitant]
     Active Substance: DIETARY SUPPLEMENT\HERBALS
     Indication: NASOPHARYNGITIS
  3. TEDUGLUTIDE [Suspect]
     Active Substance: TEDUGLUTIDE
     Indication: SHORT-BOWEL SYNDROME
     Dosage: 2.8 MILLIGRAM (0.05 MILLIGRAM/KILOGRAM DAILY DOSE), 7 DOSES PER WEEK
     Route: 058
     Dates: start: 20170209, end: 201704
  4. TEDUGLUTIDE [Suspect]
     Active Substance: TEDUGLUTIDE
     Indication: SHORT-BOWEL SYNDROME
     Dosage: 2.8 MILLIGRAM (0.05 MILLIGRAM/KILOGRAM DAILY DOSE), 7 DOSES PER WEEK
     Route: 058
     Dates: start: 20170209, end: 201704
  5. TEDUGLUTIDE [Suspect]
     Active Substance: TEDUGLUTIDE
     Dosage: 3.0 MILLIGRAM (0.05 MILLIGRAM/KILOGRAM DAILY DOSE), 7 DOSES PER WEEK
     Route: 058
     Dates: start: 201704, end: 201706
  6. TEDUGLUTIDE [Suspect]
     Active Substance: TEDUGLUTIDE
     Dosage: 3.2 MILLIGRAM (0.05 MILLIGRAM/KILOGRAM DAILY DOSE), 7 DOSES PER WEEK
     Route: 058
     Dates: start: 201706, end: 201804
  7. UMCKALOABO [PELARGONIUM SIDOIDES EXTRACT] [Concomitant]
     Indication: INFLUENZA
  8. MAGNESIUM [Concomitant]
     Active Substance: MAGNESIUM
     Indication: MUSCLE SPASMS
  9. TEDUGLUTIDE [Suspect]
     Active Substance: TEDUGLUTIDE
     Dosage: 3.0 MILLIGRAM (0.05 MILLIGRAM/KILOGRAM DAILY DOSE), 7 DOSES PER WEEK
     Route: 058
     Dates: start: 201704, end: 201706
  10. TEDUGLUTIDE [Suspect]
     Active Substance: TEDUGLUTIDE
     Dosage: 3.2 MILLIGRAM (0.05 MILLIGRAM/KILOGRAM DAILY DOSE), 7 DOSES PER WEEK
     Route: 058
     Dates: start: 201706, end: 201804
  11. TEDUGLUTIDE [Suspect]
     Active Substance: TEDUGLUTIDE
     Dosage: 3.2 MILLIGRAM (0.05 MILLIGRAM/KILOGRAM DAILY DOSE), 7 DOSES PER WEEK
     Route: 058
     Dates: start: 201706, end: 201804
  12. TEDUGLUTIDE [Suspect]
     Active Substance: TEDUGLUTIDE
     Dosage: 3.4 MILLIGRAM (0.05 MILLIGRAM/KILOGRAM DAILY DOSE), 7 DOSES PER WEEK
     Route: 058
     Dates: start: 201804
  13. TEDUGLUTIDE [Suspect]
     Active Substance: TEDUGLUTIDE
     Indication: SHORT-BOWEL SYNDROME
     Dosage: 2.8 MILLIGRAM (0.05 MILLIGRAM/KILOGRAM DAILY DOSE), 7 DOSES PER WEEK
     Route: 058
     Dates: start: 20170209, end: 201704
  14. TEDUGLUTIDE [Suspect]
     Active Substance: TEDUGLUTIDE
     Dosage: 3.4 MILLIGRAM (0.05 MILLIGRAM/KILOGRAM DAILY DOSE), 7 DOSES PER WEEK
     Route: 058
     Dates: start: 201804
  15. TEDUGLUTIDE [Suspect]
     Active Substance: TEDUGLUTIDE
     Dosage: 3.4 MILLIGRAM (0.05 MILLIGRAM/KILOGRAM DAILY DOSE), 7 DOSES PER WEEK
     Route: 058
     Dates: start: 201804
  16. IBUPROFEN. [Concomitant]
     Active Substance: IBUPROFEN
     Indication: SKIN ABRASION
  17. TEDUGLUTIDE [Suspect]
     Active Substance: TEDUGLUTIDE
     Dosage: 3.2 MILLIGRAM (0.05 MILLIGRAM/KILOGRAM DAILY DOSE), 7 DOSES PER WEEK
     Route: 058
     Dates: start: 201706, end: 201804
  18. TEDUGLUTIDE [Suspect]
     Active Substance: TEDUGLUTIDE
     Indication: SHORT-BOWEL SYNDROME
     Dosage: 2.8 MILLIGRAM (0.05 MILLIGRAM/KILOGRAM DAILY DOSE), 7 DOSES PER WEEK
     Route: 058
     Dates: start: 20170209, end: 201704
  19. TEDUGLUTIDE [Suspect]
     Active Substance: TEDUGLUTIDE
     Dosage: 3.0 MILLIGRAM (0.05 MILLIGRAM/KILOGRAM DAILY DOSE), 7 DOSES PER WEEK
     Route: 058
     Dates: start: 201704, end: 201706
  20. TEDUGLUTIDE [Suspect]
     Active Substance: TEDUGLUTIDE
     Dosage: 3.4 MILLIGRAM (0.05 MILLIGRAM/KILOGRAM DAILY DOSE), 7 DOSES PER WEEK
     Route: 058
     Dates: start: 201804

REACTIONS (1)
  - Neovaginal prolapse [Recovered/Resolved]

NARRATIVE: CASE EVENT DATE: 20190521
